FAERS Safety Report 23982151 (Version 1)
Quarter: 2024Q2

REPORT INFORMATION
  Report Type: Spontaneous
  Country: US (occurrence: US)
  Receive Date: 20240617
  Receipt Date: 20240617
  Transmission Date: 20240716
  Serious: No
  Sender: FDA-Public Use
  Company Number: US-BRISTOL-MYERS SQUIBB COMPANY-2024-093341

PATIENT

DRUGS (1)
  1. ELOTUZUMAB [Suspect]
     Active Substance: ELOTUZUMAB
     Indication: Product used for unknown indication

REACTIONS (1)
  - Product preparation error [Unknown]
